FAERS Safety Report 7127469-6 (Version None)
Quarter: 2010Q4

REPORT INFORMATION
  Report Type: 
  Country: None (occurrence: None)
  Receive Date: 20101129
  Receipt Date: 20100710
  Transmission Date: 20110411
  Serious: No
  Sender: FDA-Public Use
  Company Number: US-PFIZER INC-2010086895

PATIENT
  Age: 13 Year
  Sex: Male

DRUGS (1)
  1. VIAGRA [Suspect]
     Dosage: 8 MG, AS NEEDED
     Route: 048
     Dates: start: 20100710

REACTIONS (2)
  - GENITAL ERYTHEMA [None]
  - PENILE PAIN [None]
